FAERS Safety Report 10245738 (Version 1)
Quarter: 2014Q2

REPORT INFORMATION
  Report Type: Spontaneous
  Country: FR (occurrence: FR)
  Receive Date: 20140619
  Receipt Date: 20140619
  Transmission Date: 20141212
  Serious: Yes (Hospitalization)
  Sender: FDA-Public Use
  Company Number: FR-PFIZER INC-2014163555

PATIENT
  Age: 20 Month
  Sex: Female

DRUGS (3)
  1. ADVILMED ENFANTS ET NOURRISSONS [Suspect]
     Indication: EAR INFECTION
     Dosage: UNK
     Route: 048
     Dates: start: 20140228, end: 20140301
  2. PEDIAZOLE [Suspect]
     Indication: EAR INFECTION
     Dosage: UNK
     Route: 048
     Dates: start: 20140227, end: 20140304
  3. PARACETAMOL [Suspect]
     Indication: EAR INFECTION
     Dosage: UNK
     Route: 048
     Dates: start: 20140228, end: 20140301

REACTIONS (1)
  - Neutropenia [Recovered/Resolved]
